FAERS Safety Report 18364916 (Version 1)
Quarter: 2020Q4

REPORT INFORMATION
  Report Type: Spontaneous
  Country: US (occurrence: US)
  Receive Date: 20201009
  Receipt Date: 20201009
  Transmission Date: 20210114
  Serious: Yes (Hospitalization)
  Sender: FDA-Public Use
  Company Number: US-MYLANLABS-2020M1084988

PATIENT
  Age: 28 Year
  Sex: Female

DRUGS (3)
  1. HEPARIN [Suspect]
     Active Substance: HEPARIN SODIUM
     Indication: CEREBRAL VENOUS SINUS THROMBOSIS
     Dosage: INITIALLY HELD DRIP
  2. HEPARIN [Suspect]
     Active Substance: HEPARIN SODIUM
     Dosage: RESTARTED DRIP
  3. LITHIUM. [Suspect]
     Active Substance: LITHIUM
     Indication: BIPOLAR DISORDER
     Dosage: UNK
     Route: 065

REACTIONS (4)
  - Intracranial pressure increased [Recovering/Resolving]
  - Papilloedema [Recovering/Resolving]
  - Blindness [Recovering/Resolving]
  - Intraventricular haemorrhage [Recovering/Resolving]
